FAERS Safety Report 18103803 (Version 2)
Quarter: 2020Q3

REPORT INFORMATION
  Report Type: Report from Study
  Country: PT (occurrence: PT)
  Receive Date: 20200803
  Receipt Date: 20200807
  Transmission Date: 20201103
  Serious: Yes (Other)
  Sender: FDA-Public Use
  Company Number: PT-JNJFOC-20200736136

PATIENT

DRUGS (6)
  1. SECUKINUMAB. [Suspect]
     Active Substance: SECUKINUMAB
     Indication: PRODUCT USED FOR UNKNOWN INDICATION
     Route: 065
  2. ETANERCEPT [Suspect]
     Active Substance: ETANERCEPT
     Indication: PRODUCT USED FOR UNKNOWN INDICATION
     Route: 065
  3. REMICADE [Suspect]
     Active Substance: INFLIXIMAB
     Indication: PRODUCT USED FOR UNKNOWN INDICATION
     Route: 042
  4. ADALIMUMAB [Suspect]
     Active Substance: ADALIMUMAB
     Indication: PRODUCT USED FOR UNKNOWN INDICATION
     Route: 065
  5. STELARA [Suspect]
     Active Substance: USTEKINUMAB
     Indication: PRODUCT USED FOR UNKNOWN INDICATION
     Route: 058
  6. EFALIZUMAB [Suspect]
     Active Substance: EFALIZUMAB
     Indication: PRODUCT USED FOR UNKNOWN INDICATION
     Route: 065

REACTIONS (19)
  - Glioma [Unknown]
  - Neurological symptom [Unknown]
  - Blood disorder [Unknown]
  - Infection [Unknown]
  - Breast cancer [Unknown]
  - Adenocarcinoma of the cervix [Unknown]
  - Surgery [Unknown]
  - Cytopenia [Unknown]
  - Thrombocytopenia [Unknown]
  - Adverse event [Unknown]
  - Penile squamous cell carcinoma [Unknown]
  - Drug ineffective [Unknown]
  - Prostate cancer [Unknown]
  - Malignant neoplasm of ampulla of Vater [Unknown]
  - Malignant melanoma [Unknown]
  - Injection site reaction [Unknown]
  - Exposure during pregnancy [Unknown]
  - Sarcoma [Unknown]
  - Respiratory tract infection [Unknown]
